FAERS Safety Report 7742708-6 (Version None)
Quarter: 2011Q3

REPORT INFORMATION
  Report Type: 
  Country: None (occurrence: None)
  Receive Date: 20110909
  Receipt Date: 20110906
  Transmission Date: 20111222
  Serious: Yes (Hospitalization)
  Sender: FDA-Public Use
  Company Number: DL2011-0723

PATIENT
  Age: 24 Year
  Sex: Female

DRUGS (4)
  1. DOXYCYCLINE [Concomitant]
  2. MIFEPRISTONE (MIFEPREX) [Suspect]
     Indication: ABORTION INDUCED
     Dosage: 200 MG, ORAL
     Route: 048
     Dates: start: 20110617
  3. MISOPROSTOL [Suspect]
     Dosage: 800 MCG, BUCCAL 400 MCG, BUCCAL
     Route: 002
     Dates: start: 20110711
  4. MISOPROSTOL [Suspect]
     Dosage: 800 MCG, BUCCAL 400 MCG, BUCCAL
     Route: 002
     Dates: start: 20110618

REACTIONS (7)
  - SYNCOPE [None]
  - DIZZINESS [None]
  - DYSPNOEA [None]
  - DYSURIA [None]
  - PYREXIA [None]
  - CHEST PAIN [None]
  - MENORRHAGIA [None]
